FAERS Safety Report 7927865-0 (Version None)
Quarter: 2011Q4

REPORT INFORMATION
  Report Type: 
  Country: None (occurrence: None)
  Receive Date: 20111118
  Receipt Date: 20111118
  Transmission Date: 20120403
  Serious: Yes (Life-Threatening, Hospitalization)
  Sender: FDA-Public Use
  Company Number: None

PATIENT
  Age: 51 Year
  Sex: Female
  Weight: 60 kg

DRUGS (15)
  1. INSULIN ASPART [Concomitant]
  2. MAGNESIUM OXIDE [Concomitant]
  3. K PHOS NEUTRAL [Concomitant]
  4. SINEMET [Concomitant]
     Route: 048
  5. BACTROBAN [Concomitant]
     Route: 061
  6. SENOKOT- SYRUP [Concomitant]
     Route: 048
  7. VANCOCIN HYDROCHLORIDE [Suspect]
     Indication: INFECTION
     Dosage: 1000MG
     Route: 042
     Dates: start: 20110926, end: 20111024
  8. MAXIPIME [Concomitant]
     Indication: INFECTION
     Dosage: 2GM
     Route: 042
     Dates: start: 20111021, end: 20111025
  9. INSULIN GLARGINE [Concomitant]
  10. LEVOTHYROXINE SODIUM [Concomitant]
  11. MINERAL OIL-HYDROPHILIC PETROLATUM -AQUAPHOR [Concomitant]
     Route: 061
  12. MIRALAX [Concomitant]
  13. COLACE [Concomitant]
     Route: 048
  14. HEPARIN [Concomitant]
     Route: 051
  15. THERAPEUTIC MULTIVITAMIN ORAL LIQUID [Concomitant]

REACTIONS (17)
  - EOSINOPHILIA [None]
  - CONFUSIONAL STATE [None]
  - SKIN EXFOLIATION [None]
  - OEDEMA [None]
  - ALANINE AMINOTRANSFERASE INCREASED [None]
  - BLOOD ALKALINE PHOSPHATASE INCREASED [None]
  - RASH ERYTHEMATOUS [None]
  - PYREXIA [None]
  - UNEVALUABLE EVENT [None]
  - HYPERSENSITIVITY [None]
  - DRUG INTERACTION [None]
  - DRUG LEVEL INCREASED [None]
  - RASH GENERALISED [None]
  - ASPARTATE AMINOTRANSFERASE INCREASED [None]
  - BLISTER [None]
  - TUBULOINTERSTITIAL NEPHRITIS [None]
  - IMPAIRED HEALING [None]
